FAERS Safety Report 5779425-8 (Version None)
Quarter: 2008Q2

REPORT INFORMATION
  Report Type: 
  Country: None (occurrence: None)
  Receive Date: 20080619
  Receipt Date: 20080611
  Transmission Date: 20081010
  Serious: Yes (Other)
  Sender: FDA-Public Use
  Company Number: US-GENENTECH-260452

PATIENT
  Sex: Female
  Weight: 70.748 kg

DRUGS (2)
  1. HERCEPTIN [Suspect]
     Indication: BREAST CANCER
     Dosage: 325 MG, Q3W
     Route: 042
     Dates: start: 20060914, end: 20070911
  2. HERCEPTIN [Suspect]
     Dosage: 487 MG, Q3W
     Route: 042

REACTIONS (1)
  - GASTROOESOPHAGEAL REFLUX DISEASE [None]
